FAERS Safety Report 7238956-4 (Version None)
Quarter: 2011Q1

REPORT INFORMATION
  Report Type: 
  Country: None (occurrence: None)
  Receive Date: 20110119
  Receipt Date: 20110119
  Transmission Date: 20110831
  Serious: Yes (Hospitalization)
  Sender: FDA-Public Use
  Company Number: None

PATIENT
  Sex: Female
  Weight: 61.2356 kg

DRUGS (1)
  1. AMBIEN [Suspect]
     Indication: INSOMNIA
     Dosage: 12.5 MG -1 TABLET- ALMOST EVERY NIGHT PO
     Route: 048
     Dates: start: 20100821, end: 20101231

REACTIONS (24)
  - BALANCE DISORDER [None]
  - HYPOAESTHESIA [None]
  - FAECAL INCONTINENCE [None]
  - TREMOR [None]
  - HYPOAESTHESIA FACIAL [None]
  - NAUSEA [None]
  - BLOOD BILIRUBIN INCREASED [None]
  - HALLUCINATION, VISUAL [None]
  - DYSPNOEA [None]
  - VISUAL IMPAIRMENT [None]
  - IMPAIRED WORK ABILITY [None]
  - FEELING ABNORMAL [None]
  - NIGHT SWEATS [None]
  - DIZZINESS [None]
  - MUSCLE TWITCHING [None]
  - LOSS OF CONSCIOUSNESS [None]
  - MIDDLE INSOMNIA [None]
  - VERBIGERATION [None]
  - MEMORY IMPAIRMENT [None]
  - ACTIVITIES OF DAILY LIVING IMPAIRED [None]
  - ANXIETY [None]
  - COORDINATION ABNORMAL [None]
  - MUSCLE SPASMS [None]
  - IMPAIRED DRIVING ABILITY [None]
